FAERS Safety Report 5448642-9 (Version None)
Quarter: 2007Q3

REPORT INFORMATION
  Report Type: 
  Country: None (occurrence: None)
  Receive Date: 20070906
  Receipt Date: 20070906
  Transmission Date: 20080115
  Serious: Yes (Death)
  Sender: FDA-Public Use
  Company Number: None

PATIENT
  Age: 61 Year
  Sex: Male
  Weight: 52.1637 kg

DRUGS (18)
  1. CISPLATIN [Suspect]
     Indication: NEOPLASM MALIGNANT
     Dosage: 118 MG IV Q 21 DAYS
     Route: 042
     Dates: start: 20070823
  2. FLUOROURACIL [Suspect]
     Indication: NEOPLASM MALIGNANT
     Dosage: 1178 MG IV X 5 DAYS
     Route: 042
     Dates: start: 20070823, end: 20070901
  3. TAXOTERE [Suspect]
     Indication: NEOPLASM MALIGNANT
     Dosage: 118 MG IV Q 21 DAYS
     Route: 042
     Dates: start: 20070823
  4. PROCHOLORPERAZINE [Concomitant]
  5. GUEFENESEN [Concomitant]
  6. PAROXIETINE [Concomitant]
  7. ALBUTEROL [Concomitant]
  8. FORMOTEROL FUMARATE [Concomitant]
  9. FOLIC ACID [Concomitant]
  10. POTASSIUM CHLORIDE [Concomitant]
  11. MORPHINE SULFATE [Concomitant]
  12. FENTANYL TRANSDERMAL SYSTEM [Concomitant]
  13. RANITIDINE [Concomitant]
  14. FEFEPIME [Concomitant]
  15. FILGRASTIM [Concomitant]
  16. MAALOX [Concomitant]
  17. THIAMINE [Concomitant]
  18. APREPETANT [Concomitant]

REACTIONS (10)
  - CARDIO-RESPIRATORY ARREST [None]
  - ELECTROMECHANICAL DISSOCIATION [None]
  - FEBRILE NEUTROPENIA [None]
  - INCONTINENCE [None]
  - INFUSION RELATED REACTION [None]
  - LETHARGY [None]
  - MUCOSAL INFLAMMATION [None]
  - PAIN [None]
  - PULSE ABSENT [None]
  - SEPSIS [None]
